FAERS Safety Report 8247061-X (Version None)
Quarter: 2012Q1

REPORT INFORMATION
  Report Type: 
  Country: None (occurrence: None)
  Receive Date: 20120330
  Receipt Date: 20120321
  Transmission Date: 20120608
  Serious: Yes (Hospitalization)
  Sender: FDA-Public Use
  Company Number: PL-JNJFOC-20120310657

PATIENT
  Age: 33 Year
  Sex: Female
  Weight: 60 kg

DRUGS (3)
  1. KLOZAPOL [Concomitant]
     Indication: SCHIZOPHRENIA
     Dates: start: 20100101, end: 20110101
  2. RISPERIDONE [Suspect]
     Indication: SCHIZOPHRENIA
     Route: 048
     Dates: start: 20100101, end: 20110101
  3. RISPERIDONE [Suspect]
     Indication: SCHIZOPHRENIA
     Route: 030
     Dates: start: 20100101, end: 20110101

REACTIONS (2)
  - PITUITARY TUMOUR [None]
  - HYPERPROLACTINAEMIA [None]
